FAERS Safety Report 5799937-0 (Version None)
Quarter: 2008Q3

REPORT INFORMATION
  Report Type: 
  Country: None (occurrence: None)
  Receive Date: 20080703
  Receipt Date: 20080630
  Transmission Date: 20090109
  Serious: Yes (Hospitalization, Other)
  Sender: FDA-Public Use
  Company Number: AT-ASTRAZENECA-2008PK01377

PATIENT
  Age: 25133 Day
  Sex: Female
  Weight: 57 kg

DRUGS (4)
  1. ARIMIDEX [Suspect]
     Indication: BREAST CANCER
     Route: 048
     Dates: start: 20060521, end: 20070626
  2. TRITACE [Concomitant]
     Indication: HYPERTENSION
     Route: 048
  3. FOSAMAX [Concomitant]
     Indication: OSTEOPOROSIS
     Route: 048
  4. CAL-D-VITA [Concomitant]
     Indication: OSTEOPOROSIS

REACTIONS (2)
  - INTERVERTEBRAL DISC COMPRESSION [None]
  - LUMBAR VERTEBRAL FRACTURE [None]
